FAERS Safety Report 6647319-1 (Version None)
Quarter: 2010Q1

REPORT INFORMATION
  Report Type: 
  Country: None (occurrence: None)
  Receive Date: 20100323
  Receipt Date: 20100315
  Transmission Date: 20100710
  Serious: Yes (Other)
  Sender: FDA-Public Use
  Company Number: B0637665A

PATIENT
  Age: 57 Year
  Sex: Female

DRUGS (2)
  1. TYKERB [Suspect]
     Indication: BREAST CANCER
     Dosage: 1250MG PER DAY
     Route: 048
     Dates: start: 20100206, end: 20100306
  2. XELODA [Suspect]
     Indication: DRUG USE FOR UNKNOWN INDICATION
     Dosage: 2000MG PER DAY
     Route: 048
     Dates: start: 20100206, end: 20100220

REACTIONS (2)
  - JAUNDICE [None]
  - YELLOW SKIN [None]
